FAERS Safety Report 4513395-5 (Version None)
Quarter: 2004Q4

REPORT INFORMATION
  Report Type: 
  Country: None (occurrence: None)
  Receive Date: 20041130
  Receipt Date: 20040908
  Transmission Date: 20050328
  Serious: No
  Sender: FDA-Public Use
  Company Number: US-BRISTOL-MYERS SQUIBB COMPANY-12697710

PATIENT
  Age: 57 Year
  Sex: Female
  Weight: 99 kg

DRUGS (10)
  1. ERBITUX [Suspect]
     Indication: COLORECTAL CANCER METASTATIC
     Dosage: THERAPY DATES 24-AUG-2004 TO PRESENT
     Route: 042
     Dates: start: 20040101, end: 20040101
  2. BENADRYL [Concomitant]
     Indication: PREMEDICATION
     Route: 042
     Dates: start: 20040101, end: 20040101
  3. TYLENOL (CAPLET) [Concomitant]
     Indication: PREMEDICATION
     Dates: start: 20040101, end: 20040101
  4. COUMADIN [Concomitant]
  5. ZOLOFT [Concomitant]
  6. NEURONTIN [Concomitant]
  7. PERI-COLACE [Concomitant]
  8. OXYCONTIN [Concomitant]
  9. OXYCODONE HCL [Concomitant]
  10. DOXYCYCLINE [Concomitant]

REACTIONS (3)
  - DERMATITIS ACNEIFORM [None]
  - PHOTOSENSITIVE RASH [None]
  - TEMPERATURE INTOLERANCE [None]
